FAERS Safety Report 5802302-0 (Version None)
Quarter: 2008Q3

REPORT INFORMATION
  Report Type: 
  Country: None (occurrence: None)
  Receive Date: 20080707
  Receipt Date: 20080627
  Transmission Date: 20090109
  Serious: Yes (Other)
  Sender: FDA-Public Use
  Company Number: US-PFIZER INC-2008054161

PATIENT
  Sex: Male
  Weight: 81.6 kg

DRUGS (7)
  1. CADUET [Suspect]
     Indication: HYPERTENSION
     Dosage: TEXT:5/20MG EVERY DAY TDD:5/20MG
  2. ALL OTHER THERAPEUTIC PRODUCTS [Concomitant]
  3. ACETYLSALICYLIC ACID SRT [Concomitant]
  4. ADVAIR DISKUS 100/50 [Concomitant]
     Route: 055
  5. CALCIUM [Concomitant]
  6. MAGNESIUM [Concomitant]
  7. VITAMINS [Concomitant]

REACTIONS (4)
  - ANGIOEDEMA [None]
  - LIP OEDEMA [None]
  - LIP SWELLING [None]
  - SWELLING FACE [None]
